FAERS Safety Report 7465717-3 (Version None)
Quarter: 2011Q2

REPORT INFORMATION
  Report Type: 
  Country: None (occurrence: None)
  Receive Date: 20110509
  Receipt Date: 20110428
  Transmission Date: 20111010
  Serious: Yes (Other)
  Sender: FDA-Public Use
  Company Number: B0717608A

PATIENT
  Age: 13 Year
  Sex: Male

DRUGS (3)
  1. ATRIANCE [Suspect]
     Route: 065
  2. CYTARABINE [Concomitant]
     Route: 065
  3. CYCLOPHOSPHAMIDE [Concomitant]

REACTIONS (3)
  - PERIPHERAL SENSORIMOTOR NEUROPATHY [None]
  - URINARY RETENTION [None]
  - HYPOREFLEXIA [None]
